FAERS Safety Report 23988568 (Version 1)
Quarter: 2024Q2

REPORT INFORMATION
  Report Type: Spontaneous
  Country: FR (occurrence: FR)
  Receive Date: 20240619
  Receipt Date: 20240619
  Transmission Date: 20240716
  Serious: Yes (Other)
  Sender: FDA-Public Use
  Company Number: None

PATIENT
  Age: 56 Year
  Sex: Male
  Weight: 73.7 kg

DRUGS (4)
  1. MEROPENEM [Suspect]
     Active Substance: MEROPENEM
     Indication: Pneumonia
     Dosage: ()
     Route: 042
     Dates: start: 20240510, end: 20240512
  2. MEROPENEM [Suspect]
     Active Substance: MEROPENEM
     Indication: Pneumonia
     Dosage: ()
     Route: 042
     Dates: start: 20240520, end: 20240520
  3. PIPERACILLIN SODIUM [Suspect]
     Active Substance: PIPERACILLIN SODIUM
     Indication: Pneumonia
     Dosage: ()
     Route: 042
     Dates: start: 20240507, end: 20240510
  4. PIPERACILLIN SODIUM [Suspect]
     Active Substance: PIPERACILLIN SODIUM
     Indication: Pneumonia
     Dosage: ()
     Route: 042
     Dates: start: 20240513, end: 20240519

REACTIONS (2)
  - Evans syndrome [Recovering/Resolving]
  - Off label use [Unknown]

NARRATIVE: CASE EVENT DATE: 20240520
